FAERS Safety Report 24335390 (Version 2)
Quarter: 2024Q4

REPORT INFORMATION
  Report Type: Spontaneous
  Country: JP (occurrence: JP)
  Receive Date: 20240918
  Receipt Date: 20241001
  Transmission Date: 20250115
  Serious: Yes (Death, Life-Threatening, Hospitalization, Other)
  Sender: ALKEM
  Company Number: None

PATIENT
  Age: 6 Decade
  Sex: Female

DRUGS (8)
  1. TACROLIMUS [Suspect]
     Active Substance: TACROLIMUS
     Indication: Prophylaxis against graft versus host disease
     Dosage: UNK (INFUSION)
     Route: 065
  2. TACROLIMUS [Suspect]
     Active Substance: TACROLIMUS
     Dosage: UNK
     Route: 048
  3. FLUDARABINE [Suspect]
     Active Substance: FLUDARABINE PHOSPHATE
     Indication: Angioimmunoblastic T-cell lymphoma
     Dosage: 150 MILLIGRAM/SQ. METER
     Route: 065
  4. MELPHALAN [Suspect]
     Active Substance: MELPHALAN
     Indication: Angioimmunoblastic T-cell lymphoma
     Dosage: 140 MILLIGRAM/SQ. METER
     Route: 065
  5. METHOTREXATE [Suspect]
     Active Substance: METHOTREXATE
     Indication: Prophylaxis against graft versus host disease
     Dosage: UNK
     Route: 065
  6. PREDNISOLONE [Suspect]
     Active Substance: PREDNISOLONE
     Indication: Acute graft versus host disease
     Dosage: 0.5 MILLIGRAM/KILOGRAM
     Route: 065
  7. PREDNISOLONE [Suspect]
     Active Substance: PREDNISOLONE
     Indication: Graft versus host disease in gastrointestinal tract
     Dosage: 1 MILLIGRAM/KILOGRAM
     Route: 065
  8. PREDNISOLONE [Suspect]
     Active Substance: PREDNISOLONE
     Dosage: 2 MILLIGRAM/KILOGRAM
     Route: 065

REACTIONS (8)
  - Immunosuppressant drug level increased [Fatal]
  - Progressive multifocal leukoencephalopathy [Fatal]
  - Chronic graft versus host disease [Unknown]
  - Acute graft versus host disease [Recovering/Resolving]
  - Clostridium difficile infection [Unknown]
  - JC virus infection [Unknown]
  - Febrile neutropenia [Unknown]
  - Infection [Unknown]
